FAERS Safety Report 25383237 (Version 2)
Quarter: 2025Q2

REPORT INFORMATION
  Report Type: Report from Study
  Country: MX (occurrence: MX)
  Receive Date: 20250602
  Receipt Date: 20250604
  Transmission Date: 20250717
  Serious: Yes (Other)
  Sender: JOHNSON AND JOHNSON
  Company Number: MX-JNJFOC-20250525344

PATIENT
  Age: 35 Year
  Sex: Female

DRUGS (1)
  1. SIMPONI [Suspect]
     Active Substance: GOLIMUMAB
     Indication: Ankylosing spondylitis
     Route: 058

REACTIONS (15)
  - Rheumatic fever [Recovered/Resolved]
  - Ankylosing spondylitis [Recovered/Resolved]
  - Musculoskeletal stiffness [Recovered/Resolved]
  - Bone disorder [Recovered/Resolved]
  - Tonsillitis [Recovered/Resolved]
  - Muscular weakness [Recovered/Resolved]
  - Asthenia [Recovered/Resolved]
  - Fatigue [Recovered/Resolved]
  - Immune system disorder [Not Recovered/Not Resolved]
  - Influenza [Not Recovered/Not Resolved]
  - Respiratory tract infection [Unknown]
  - Dry skin [Recovering/Resolving]
  - Molluscum contagiosum [Recovering/Resolving]
  - Dermatitis [Not Recovered/Not Resolved]
  - Sensitive skin [Recovering/Resolving]

NARRATIVE: CASE EVENT DATE: 20250516
